FAERS Safety Report 16794728 (Version 2)
Quarter: 2019Q4

REPORT INFORMATION
  Report Type: Spontaneous
  Country: US (occurrence: US)
  Receive Date: 20190911
  Receipt Date: 20191010
  Transmission Date: 20200122
  Serious: No
  Sender: FDA-Public Use
  Company Number: US-PFIZER INC-2019324025

PATIENT
  Age: 32 Year
  Sex: Female
  Weight: 55.78 kg

DRUGS (1)
  1. XELJANZ [Suspect]
     Active Substance: TOFACITINIB CITRATE
     Indication: COLITIS
     Dosage: 10 MG, DAILY (5MG, 2 TABLETS)
     Route: 048

REACTIONS (3)
  - Bone pain [Recovering/Resolving]
  - Acne [Unknown]
  - Headache [Recovering/Resolving]
